FAERS Safety Report 5869977-1 (Version None)
Quarter: 2008Q3

REPORT INFORMATION
  Report Type: 
  Country: None (occurrence: None)
  Receive Date: 20080904
  Receipt Date: 20080904
  Transmission Date: 20090109
  Serious: Yes (Hospitalization)
  Sender: FDA-Public Use
  Company Number: PHEH1996US01026

PATIENT
  Sex: Male
  Weight: 85 kg

DRUGS (8)
  1. NEORAL [Suspect]
     Route: 048
     Dates: start: 19950419
  2. IMURAN [Concomitant]
  3. PREDNISONE TAB [Concomitant]
  4. CLOTRIMAZOLE [Concomitant]
  5. ZANTAC [Concomitant]
  6. BACTRIM [Concomitant]
  7. ACYCLOVIR [Concomitant]
  8. CLONIDINE [Concomitant]

REACTIONS (1)
  - TRANSPLANT REJECTION [None]
